FAERS Safety Report 5989474-2 (Version None)
Quarter: 2008Q4

REPORT INFORMATION
  Report Type: 
  Country: None (occurrence: None)
  Receive Date: 20081210
  Receipt Date: 20081204
  Transmission Date: 20090506
  Serious: Yes (Hospitalization)
  Sender: FDA-Public Use
  Company Number: DE-ABBOTT-08P-062-0491354-00

PATIENT
  Sex: Female

DRUGS (1)
  1. ERGENYL CHRONO TABLET PR [Suspect]
     Indication: DRUG USE FOR UNKNOWN INDICATION
     Route: 048

REACTIONS (2)
  - FIBULA FRACTURE [None]
  - OSTEOMALACIA [None]
